FAERS Safety Report 7068628-0 (Version None)
Quarter: 2010Q4

REPORT INFORMATION
  Report Type: 
  Country: None (occurrence: None)
  Receive Date: 20101028
  Receipt Date: 20101021
  Transmission Date: 20110411
  Serious: Yes (Other)
  Sender: FDA-Public Use
  Company Number: US-ROCHE-736536

PATIENT
  Sex: Female

DRUGS (2)
  1. AVASTIN [Suspect]
     Route: 065
     Dates: start: 20070101, end: 20080801
  2. CARBOPLATIN [Suspect]
     Route: 065

REACTIONS (3)
  - BRAIN NEOPLASM [None]
  - SINUSITIS [None]
  - SQUAMOUS CELL CARCINOMA [None]
